FAERS Safety Report 9580923 (Version 1)
Quarter: 2013Q4

REPORT INFORMATION
  Report Type: Spontaneous
  Country: US (occurrence: None)
  Receive Date: 20131001
  Receipt Date: 20131001
  Transmission Date: 20140711
  Serious: Yes (Disabling)
  Sender: FDA-Public Use
  Company Number: None

PATIENT
  Age: 37 Year
  Sex: Female
  Weight: 73.48 kg

DRUGS (1)
  1. IC AMPHETAMINE SALTS [Suspect]
     Indication: ATTENTION DEFICIT/HYPERACTIVITY DISORDER
     Dosage: 2 PILLS ONCE DAILY TAKEN BY MOUTH
     Dates: start: 20130806, end: 20130923

REACTIONS (8)
  - Nausea [None]
  - Vomiting [None]
  - Fatigue [None]
  - Headache [None]
  - Muscle spasms [None]
  - Disturbance in attention [None]
  - Product substitution issue [None]
  - Malaise [None]
